FAERS Safety Report 6220207-0 (Version None)
Quarter: 2009Q2

REPORT INFORMATION
  Report Type: 
  Country: None (occurrence: None)
  Receive Date: 20090609
  Receipt Date: 20090602
  Transmission Date: 20091009
  Serious: Yes (Disabling)
  Sender: FDA-Public Use
  Company Number: US-MERCK-0810USA05282

PATIENT
  Age: 73 Year
  Sex: Female
  Weight: 81 kg

DRUGS (3)
  1. FOSAMAX [Suspect]
     Indication: OSTEOPOROSIS
     Route: 048
     Dates: start: 20020101, end: 20020101
  2. FOSAMAX [Suspect]
     Route: 048
     Dates: start: 20020101, end: 20060101
  3. ACTONEL [Suspect]
     Indication: OSTEOPOROSIS
     Route: 065
     Dates: start: 20060101, end: 20070101

REACTIONS (15)
  - BRONCHIAL HYPERREACTIVITY [None]
  - BRONCHITIS [None]
  - DRUG INTOLERANCE [None]
  - GASTROOESOPHAGEAL REFLUX DISEASE [None]
  - ILIOTIBIAL BAND SYNDROME [None]
  - JAW DISORDER [None]
  - MELANOCYTIC NAEVUS [None]
  - MUSCLE STRAIN [None]
  - ORAL INFECTION [None]
  - OSTEONECROSIS [None]
  - PAIN IN EXTREMITY [None]
  - PROCEDURAL HEADACHE [None]
  - SKIN LESION [None]
  - THERMAL BURN [None]
  - TOOTH FRACTURE [None]
